FAERS Safety Report 15677330 (Version 2)
Quarter: 2020Q4

REPORT INFORMATION
  Report Type: Spontaneous
  Country: AU (occurrence: AU)
  Receive Date: 20181130
  Receipt Date: 20201021
  Transmission Date: 20210113
  Serious: Yes (Other)
  Sender: FDA-Public Use
  Company Number: AU-ALEXION-A201815691

PATIENT
  Age: 45 Year
  Sex: Female

DRUGS (1)
  1. SOLIRIS [Suspect]
     Active Substance: ECULIZUMAB
     Indication: PAROXYSMAL NOCTURNAL HAEMOGLOBINURIA
     Dosage: UNK
     Route: 065
     Dates: start: 20110503

REACTIONS (4)
  - Deep vein thrombosis [Unknown]
  - Road traffic accident [Unknown]
  - Extravascular haemolysis [Unknown]
  - Fall [Unknown]

NARRATIVE: CASE EVENT DATE: 20130927
